FAERS Safety Report 5604908-0 (Version None)
Quarter: 2008Q1

REPORT INFORMATION
  Report Type: 
  Country: None (occurrence: None)
  Receive Date: 20080128
  Receipt Date: 20080114
  Transmission Date: 20080703
  Serious: Yes (Other)
  Sender: FDA-Public Use
  Company Number: IT-GENENTECH-254808

PATIENT
  Sex: Female

DRUGS (3)
  1. HERCEPTIN [Suspect]
     Indication: BREAST CANCER METASTATIC
     Dosage: 8 MG/KG, Q3W
  2. HERCEPTIN [Suspect]
     Dosage: 6 MG/KG, Q3W
  3. VINORELBINE [Suspect]
     Indication: BREAST CANCER METASTATIC
     Dosage: 55 MG/M2, Q3W

REACTIONS (1)
  - TRANSAMINASES INCREASED [None]
